FAERS Safety Report 7676614-2 (Version None)
Quarter: 2011Q3

REPORT INFORMATION
  Report Type: 
  Country: None (occurrence: None)
  Receive Date: 20110805
  Receipt Date: 20110721
  Transmission Date: 20111222
  Serious: Yes (Hospitalization, Other)
  Sender: FDA-Public Use
  Company Number: 2011MA009254

PATIENT
  Age: 2 Day
  Sex: Female
  Weight: 3.1 kg

DRUGS (1)
  1. TRAMADOL HYDROCHLORIDE [Suspect]
     Indication: MATERNAL EXPOSURE DURING PREGNANCY
     Dosage: 300 MG;QD;TRPL
     Route: 064

REACTIONS (6)
  - NEONATAL TACHYCARDIA [None]
  - MATERNAL DRUGS AFFECTING FOETUS [None]
  - DRUG WITHDRAWAL SYNDROME NEONATAL [None]
  - CAESAREAN SECTION [None]
  - IRRITABILITY [None]
  - VOMITING NEONATAL [None]
